FAERS Safety Report 9527113 (Version 2)
Quarter: 2013Q4

REPORT INFORMATION
  Report Type: Spontaneous
  Country: DE (occurrence: DE)
  Receive Date: 20130916
  Receipt Date: 20131010
  Transmission Date: 20140711
  Serious: Yes (Other)
  Sender: FDA-Public Use
  Company Number: DE-ROCHE-1274829

PATIENT
  Age: 81 Year
  Sex: Female

DRUGS (11)
  1. ZELBORAF [Suspect]
     Indication: METASTATIC MALIGNANT MELANOMA
     Route: 048
     Dates: start: 20130725, end: 20130818
  2. ZELBORAF [Suspect]
     Route: 048
     Dates: start: 20130905, end: 20130910
  3. BELOC-ZOK MITE [Concomitant]
     Route: 048
  4. DIGIMERCK PICO [Concomitant]
     Route: 048
  5. FUROSEMIDE [Concomitant]
     Route: 065
  6. LEVOTHYROXINE [Concomitant]
     Route: 048
  7. ERGENYL CHRONO [Concomitant]
     Route: 048
  8. MIRTAZAPIN [Concomitant]
     Route: 048
  9. NOVALGIN [Concomitant]
     Dosage: 500MG/ML - 4X40DROPS
     Route: 048
  10. CLEXANE [Concomitant]
     Route: 058
  11. ACTRAPHANE HM 30/70 [Concomitant]
     Route: 058

REACTIONS (1)
  - Renal failure [Unknown]
